FAERS Safety Report 8044665-4 (Version None)
Quarter: 2012Q1

REPORT INFORMATION
  Report Type: 
  Country: None (occurrence: None)
  Receive Date: 20120113
  Receipt Date: 20120105
  Transmission Date: 20120608
  Serious: Yes (Hospitalization)
  Sender: FDA-Public Use
  Company Number: DK-NOVOPROD-331456

PATIENT

DRUGS (10)
  1. METOPROLOL SUCCINATE [Concomitant]
  2. MAGNYL                             /00002701/ [Concomitant]
  3. LOPID [Concomitant]
  4. TREDAPTIVE [Concomitant]
  5. AMLODIPIN ACTAVIS [Concomitant]
  6. LOSARTAN POTASSIUM AND HYDROCHLOROTHIAZIDE [Concomitant]
  7. METFORMIN ACTAVIS [Concomitant]
  8. NOVORAPID FLEXPEN [Concomitant]
     Indication: TYPE 2 DIABETES MELLITUS
  9. VICTOZA [Suspect]
     Indication: TYPE 2 DIABETES MELLITUS
     Dosage: 1.8 MG, QD
     Dates: start: 20100211, end: 20110628
  10. LEVEMIR [Concomitant]
     Indication: TYPE 2 DIABETES MELLITUS

REACTIONS (1)
  - PANCREATITIS ACUTE [None]
